FAERS Safety Report 12560682 (Version 1)
Quarter: 2016Q3

REPORT INFORMATION
  Report Type: Spontaneous
  Country: ES (occurrence: ES)
  Receive Date: 20160715
  Receipt Date: 20160715
  Transmission Date: 20161109
  Serious: Yes (Other)
  Sender: FDA-Public Use
  Company Number: ES-BAYER-2016-131189

PATIENT
  Age: 77 Year
  Sex: Male

DRUGS (2)
  1. OMEPRAZOLE. [Concomitant]
     Active Substance: OMEPRAZOLE
     Dosage: 20 MG, QD
  2. ACETYLSALICYLIC ACID (} 100 MG) [Suspect]
     Active Substance: ASPIRIN
     Dosage: 125 MG, QD

REACTIONS (8)
  - Vertigo [Recovered/Resolved]
  - Tinnitus [None]
  - General physical health deterioration [None]
  - Tinnitus [Recovered/Resolved]
  - Vascular encephalopathy [None]
  - Vertigo positional [None]
  - Dizziness [None]
  - Feeling of despair [None]
